FAERS Safety Report 5868352-3 (Version None)
Quarter: 2008Q3

REPORT INFORMATION
  Report Type: 
  Country: None (occurrence: None)
  Receive Date: 20080903
  Receipt Date: 20080828
  Transmission Date: 20090109
  Serious: Yes (Death)
  Sender: FDA-Public Use
  Company Number: US-JNJFOC-20080806609

PATIENT
  Age: 9 Decade
  Sex: Female

DRUGS (1)
  1. REOPRO [Suspect]
     Indication: ARTERIOGRAM CORONARY

REACTIONS (1)
  - PULMONARY ALVEOLAR HAEMORRHAGE [None]
